FAERS Safety Report 9804101 (Version 1)
Quarter: 2014Q1

REPORT INFORMATION
  Report Type: Spontaneous
  Country: GB (occurrence: GB)
  Receive Date: 20140108
  Receipt Date: 20140108
  Transmission Date: 20141002
  Serious: Yes (Other)
  Sender: FDA-Public Use
  Company Number: GB-TEVA-454837ISR

PATIENT
  Sex: Male

DRUGS (1)
  1. METOPROLOL [Suspect]
     Indication: ARRHYTHMIA
     Route: 065
     Dates: start: 2009

REACTIONS (3)
  - Arrhythmia [Unknown]
  - Drug ineffective [Unknown]
  - Product formulation issue [Unknown]
